FAERS Safety Report 8529902-1 (Version None)
Quarter: 2012Q3

REPORT INFORMATION
  Report Type: 
  Country: None (occurrence: None)
  Receive Date: 20120723
  Receipt Date: 20120719
  Transmission Date: 20120928
  Serious: Yes (Death)
  Sender: FDA-Public Use
  Company Number: 2012SP002008

PATIENT
  Age: 24 Year
  Sex: Male

DRUGS (6)
  1. LATUDA [Suspect]
     Indication: PSYCHOTIC DISORDER
     Route: 048
     Dates: start: 20120123, end: 20120222
  2. ADDERALL 5 [Concomitant]
     Indication: ATTENTION DEFICIT/HYPERACTIVITY DISORDER
     Dates: start: 20110606, end: 20120607
  3. RISPERDAL [Concomitant]
     Indication: PSYCHOTIC DISORDER
     Dates: start: 20110916, end: 20120622
  4. LATUDA [Suspect]
     Route: 048
     Dates: start: 20120223, end: 20120522
  5. LATUDA [Suspect]
     Route: 048
     Dates: start: 20111201, end: 20120122
  6. LATUDA [Suspect]
     Route: 048
     Dates: start: 20120523

REACTIONS (1)
  - DEATH [None]
